FAERS Safety Report 4425410-8 (Version None)
Quarter: 2004Q3

REPORT INFORMATION
  Report Type: 
  Country: None (occurrence: None)
  Receive Date: 20040813
  Receipt Date: 20040803
  Transmission Date: 20050211
  Serious: Yes (Other)
  Sender: FDA-Public Use
  Company Number: 6009651

PATIENT
  Age: 9 Year
  Sex: Male

DRUGS (1)
  1. ALBUTEROL SULFATE [Suspect]
     Dosage: 2PUFF AS REQUIRED

REACTIONS (2)
  - DEVICE FAILURE [None]
  - WHEEZING [None]
